FAERS Safety Report 23144277 (Version 2)
Quarter: 2025Q2

REPORT INFORMATION
  Report Type: Report from Study
  Country: DE (occurrence: DE)
  Receive Date: 20231103
  Receipt Date: 20250612
  Transmission Date: 20250716
  Serious: Yes (Hospitalization)
  Sender: BIOCON
  Company Number: DE-MYLANLABS-2023M1105286

PATIENT

DRUGS (1)
  1. HULIO [Suspect]
     Active Substance: ADALIMUMAB-FKJP
     Indication: Rheumatoid arthritis
     Dosage: 40 MILLIGRAM, Q2W
     Route: 065

REACTIONS (4)
  - Peripheral arterial occlusive disease [Recovered/Resolved]
  - Impaired healing [Recovered/Resolved]
  - Foot deformity [Recovered/Resolved]
  - Metatarsalgia [Not Recovered/Not Resolved]

NARRATIVE: CASE EVENT DATE: 20230112
